FAERS Safety Report 25248668 (Version 1)
Quarter: 2025Q2

REPORT INFORMATION
  Report Type: Spontaneous
  Country: US (occurrence: US)
  Receive Date: 20250429
  Receipt Date: 20250429
  Transmission Date: 20250717
  Serious: Yes (Other)
  Sender: AUROBINDO
  Company Number: US-AUROBINDO-AUR-APL-2013-01428

PATIENT
  Age: 37 Year
  Sex: Male

DRUGS (4)
  1. ZOLPIDEM TARTRATE [Suspect]
     Active Substance: ZOLPIDEM TARTRATE
     Indication: Insomnia
     Route: 065
  2. ZOLPIDEM TARTRATE [Suspect]
     Active Substance: ZOLPIDEM TARTRATE
     Route: 065
  3. ZOLPIDEM TARTRATE [Suspect]
     Active Substance: ZOLPIDEM TARTRATE
     Dosage: 5 MILLIGRAM, TWO TIMES A DAY
     Route: 065
  4. BUPROPION [Suspect]
     Active Substance: BUPROPION
     Indication: Nicotine dependence
     Route: 065

REACTIONS (9)
  - Intentional self-injury [Unknown]
  - Parasomnia [Unknown]
  - Communication disorder [Unknown]
  - Incoherent [Unknown]
  - Disorientation [Unknown]
  - Altered state of consciousness [Unknown]
  - Anxiety [Unknown]
  - Abnormal dreams [Unknown]
  - Intentional product use issue [Unknown]
